FAERS Safety Report 5251778-9 (Version None)
Quarter: 2007Q1

REPORT INFORMATION
  Report Type: 
  Country: None (occurrence: None)
  Receive Date: 20070228
  Receipt Date: 20070216
  Transmission Date: 20070707
  Serious: Yes (Hospitalization)
  Sender: FDA-Public Use
  Company Number: FR-PFIZER INC-2007014369

PATIENT
  Age: 37 Year
  Sex: Male

DRUGS (6)
  1. RELPAX [Suspect]
     Indication: MIGRAINE
     Route: 048
  2. ALPRAZOLAM [Suspect]
     Indication: ANXIETY
     Route: 048
     Dates: end: 20061118
  3. IBUPROFEN [Suspect]
     Indication: MIGRAINE
     Route: 048
  4. PARACETAMOL [Suspect]
     Route: 048
  5. TRAMADOL HCL [Suspect]
     Route: 048
  6. ZOLPIDEM TARTRATE [Suspect]
     Indication: SLEEP DISORDER
     Route: 048

REACTIONS (2)
  - DRUG ABUSER [None]
  - DRUG WITHDRAWAL SYNDROME [None]
